FAERS Safety Report 5031162-3 (Version None)
Quarter: 2006Q2

REPORT INFORMATION
  Report Type: 
  Country: None (occurrence: None)
  Receive Date: 20060505
  Receipt Date: 20060307
  Transmission Date: 20061013
  Serious: Yes (Hospitalization)
  Sender: FDA-Public Use
  Company Number: K200600312

PATIENT
  Age: 75 Year
  Sex: Female
  Weight: 69.8 kg

DRUGS (5)
  1. METHIMAZOLE [Suspect]
     Indication: HYPERTHYROIDISM
     Dosage: 5 MG, QD, ORAL
     Route: 048
     Dates: start: 20050901, end: 20060201
  2. LIPITOR /NET/ (ATORVASTATIN CALCIUM) [Concomitant]
  3. PROTONIX [Concomitant]
  4. CYANOCOBALAMIN [Concomitant]
  5. SOTALOL (SOTALOL) [Concomitant]

REACTIONS (2)
  - BLOOD THYROID STIMULATING HORMONE INCREASED [None]
  - HYPOTHYROIDISM [None]
